FAERS Safety Report 24545963 (Version 1)
Quarter: 2024Q4

REPORT INFORMATION
  Report Type: Spontaneous
  Country: FR (occurrence: FR)
  Receive Date: 20241024
  Receipt Date: 20241024
  Transmission Date: 20250114
  Serious: Yes (Hospitalization, Other)
  Sender: BRISTOL-MYERS SQUIBB COMPANY
  Company Number: None

PATIENT
  Age: 62 Year
  Sex: Male

DRUGS (6)
  1. KRAZATI [Suspect]
     Active Substance: ADAGRASIB
     Indication: Lung adenocarcinoma
     Dosage: 1200 MG/D
     Route: 048
     Dates: start: 20240503, end: 20240704
  2. KRAZATI [Suspect]
     Active Substance: ADAGRASIB
     Dates: start: 20240710
  3. DENOSUMAB [Suspect]
     Active Substance: DENOSUMAB
     Indication: Product used for unknown indication
     Dates: start: 20240603
  4. MORPHINE [Concomitant]
     Active Substance: MORPHINE
     Indication: Product used for unknown indication
  5. TINZAPARIN [Concomitant]
     Active Substance: TINZAPARIN
     Indication: Product used for unknown indication
  6. VOGALENE [Concomitant]
     Active Substance: METOPIMAZINE
     Indication: Product used for unknown indication

REACTIONS (7)
  - Acute kidney injury [Recovered/Resolved]
  - General physical condition abnormal [Unknown]
  - Hypocalcaemia [Unknown]
  - Asthenia [Unknown]
  - Decreased appetite [Unknown]
  - Nausea [Unknown]
  - Vomiting [Unknown]

NARRATIVE: CASE EVENT DATE: 20240510
